FAERS Safety Report 16607691 (Version 1)
Quarter: 2019Q3

REPORT INFORMATION
  Report Type: Spontaneous
  Country: US (occurrence: US)
  Receive Date: 20190722
  Receipt Date: 20190722
  Transmission Date: 20191004
  Serious: No
  Sender: FDA-Public Use
  Company Number: US-TEVA-2019-US-1082321

PATIENT
  Age: 34 Year
  Sex: Female

DRUGS (4)
  1. DIVALPROEX SODIUM. [Concomitant]
     Active Substance: DIVALPROEX SODIUM
  2. ESTROGENS CONJUGATED [Concomitant]
     Active Substance: ESTROGENS, CONJUGATED
  3. PAROXETINE. [Suspect]
     Active Substance: PAROXETINE
     Route: 065
  4. NEFAZODONE [Concomitant]
     Active Substance: NEFAZODONE

REACTIONS (3)
  - Urinary incontinence [Recovered/Resolved]
  - Pollakiuria [Recovered/Resolved]
  - Nocturia [Recovered/Resolved]
